FAERS Safety Report 16058084 (Version 1)
Quarter: 2019Q1

REPORT INFORMATION
  Report Type: Spontaneous
  Country: LV (occurrence: LV)
  Receive Date: 20190311
  Receipt Date: 20190311
  Transmission Date: 20190418
  Serious: Yes (Other)
  Sender: FDA-Public Use
  Company Number: LV-SUN PHARMACEUTICAL INDUSTRIES LTD-2019R1-201130

PATIENT
  Sex: Female
  Weight: .83 kg

DRUGS (3)
  1. MANNITOL. [Concomitant]
     Active Substance: MANNITOL
     Indication: PRODUCT USED FOR UNKNOWN INDICATION
     Dosage: UNK
     Route: 064
  2. METHYLDOPA. [Suspect]
     Active Substance: METHYLDOPA
     Indication: PRE-ECLAMPSIA
     Dosage: UNK
     Route: 064
  3. LABETALOL [Suspect]
     Active Substance: LABETALOL\LABETALOL HYDROCHLORIDE
     Indication: PRE-ECLAMPSIA
     Dosage: UNK
     Route: 064

REACTIONS (4)
  - Foetal exposure during pregnancy [Unknown]
  - Foetal growth restriction [Unknown]
  - Low birth weight baby [Unknown]
  - Premature baby [Unknown]
